FAERS Safety Report 11284788 (Version 5)
Quarter: 2018Q4

REPORT INFORMATION
  Report Type: Spontaneous
  Country: US (occurrence: US)
  Receive Date: 20150720
  Receipt Date: 20181008
  Transmission Date: 20190204
  Serious: Yes (Other)
  Sender: FDA-Public Use
  Company Number: US-DSJP-DSU-2015-122803

PATIENT
  Age: 74 Year
  Sex: Male
  Weight: 95.24 kg

DRUGS (9)
  1. FISH OIL [Concomitant]
     Active Substance: FISH OIL
  2. PRILOSEC [Concomitant]
     Active Substance: OMEPRAZOLE MAGNESIUM
  3. BABY ASPIRIN [Concomitant]
     Active Substance: ASPIRIN
  4. BENICAR [Suspect]
     Active Substance: OLMESARTAN MEDOXOMIL
     Indication: HYPERTENSION
     Dosage: 40 MG, UNK
     Dates: start: 20080805, end: 20150219
  5. VITAMIN [Concomitant]
     Active Substance: VITAMINS
  6. HYDROCHOLODIAXIDE [Concomitant]
  7. NORVAC [Concomitant]
     Active Substance: AMLODIPINE BESYLATE
  8. VITAMIN D                          /00107901/ [Concomitant]
     Active Substance: ERGOCALCIFEROL
  9. KRILL OIL [Concomitant]
     Active Substance: DIETARY SUPPLEMENT

REACTIONS (4)
  - Diverticulitis [Recovered/Resolved]
  - Large intestine polyp [Recovered/Resolved]
  - Sprue-like enteropathy [Not Recovered/Not Resolved]
  - Barrett^s oesophagus [Unknown]

NARRATIVE: CASE EVENT DATE: 2009
